FAERS Safety Report 13748274 (Version 8)
Quarter: 2018Q1

REPORT INFORMATION
  Report Type: Spontaneous
  Country: NO (occurrence: NO)
  Receive Date: 20170713
  Receipt Date: 20180309
  Transmission Date: 20180508
  Serious: Yes (Disabling, Other)
  Sender: FDA-Public Use
  Company Number: NO-009507513-1707NOR000919

PATIENT
  Age: 52 Year
  Sex: Male
  Weight: 75 kg

DRUGS (5)
  1. FOSAMAX [Suspect]
     Active Substance: ALENDRONATE SODIUM
     Indication: OSTEONECROSIS
     Dosage: 70 MG ONCE A WEEK
     Route: 048
     Dates: start: 201401, end: 20141026
  2. CALCIGRAN FORTE [Concomitant]
     Active Substance: CALCIUM CARBONATE\CHOLECALCIFEROL
     Dosage: UNK
     Dates: start: 20140104, end: 20141026
  3. FOSAMAX [Suspect]
     Active Substance: ALENDRONATE SODIUM
     Indication: BONE DISORDER
     Dosage: 70 MG
     Dates: start: 20140908, end: 20150601
  4. FOSAMAX [Suspect]
     Active Substance: ALENDRONATE SODIUM
     Indication: OSTEONECROSIS
     Dosage: 1 DF, QW
     Route: 048
     Dates: start: 20130913, end: 20141103
  5. CALCIGRAN FORTE [Concomitant]
     Active Substance: CALCIUM CARBONATE\CHOLECALCIFEROL
     Dosage: DAILY
     Dates: start: 20140908, end: 201506

REACTIONS (20)
  - Back pain [Not Recovered/Not Resolved]
  - Fractured coccyx [Not Recovered/Not Resolved]
  - Pelvic fracture [Not Recovered/Not Resolved]
  - Device loosening [Unknown]
  - Procedural pain [Unknown]
  - Ischaemia [Unknown]
  - Calcinosis [Not Recovered/Not Resolved]
  - Calcification of muscle [Not Recovered/Not Resolved]
  - Skin infection [Not Recovered/Not Resolved]
  - Fracture [Unknown]
  - Bone disorder [Unknown]
  - Coccydynia [Not Recovered/Not Resolved]
  - Skin ulcer [Not Recovered/Not Resolved]
  - Joint dislocation [Not Recovered/Not Resolved]
  - Femur fracture [Not Recovered/Not Resolved]
  - Spinal column stenosis [Unknown]
  - Paralysis [Unknown]
  - Product use issue [Unknown]
  - Product use in unapproved indication [Unknown]
  - Hypoaesthesia [Unknown]

NARRATIVE: CASE EVENT DATE: 201401
